FAERS Safety Report 9299524 (Version 1)
Quarter: 2013Q2

REPORT INFORMATION
  Report Type: Spontaneous
  Country: CA (occurrence: CA)
  Receive Date: 20130521
  Receipt Date: 20130521
  Transmission Date: 20140414
  Serious: Yes (Other)
  Sender: FDA-Public Use
  Company Number: CA-ROCHE-1225823

PATIENT
  Age: 45 Year
  Sex: Female

DRUGS (4)
  1. XOLAIR [Suspect]
     Indication: ASTHMA
     Route: 058
     Dates: start: 20060109
  2. XOLAIR [Suspect]
     Route: 058
     Dates: start: 20070108
  3. XOLAIR [Suspect]
     Route: 058
     Dates: start: 20120924
  4. XOLAIR [Suspect]
     Route: 058
     Dates: start: 20130128

REACTIONS (3)
  - Urinary tract infection [Unknown]
  - Blood pressure increased [Not Recovered/Not Resolved]
  - Respiratory disorder [Not Recovered/Not Resolved]
